FAERS Safety Report 9301188 (Version 1)
Quarter: 2013Q2

REPORT INFORMATION
  Report Type: Spontaneous
  Country: US (occurrence: US)
  Receive Date: 20130521
  Receipt Date: 20130521
  Transmission Date: 20140414
  Serious: No
  Sender: FDA-Public Use
  Company Number: US-BRISTOL-MYERS SQUIBB COMPANY-17112095

PATIENT
  Age: 50 Year
  Sex: Male

DRUGS (3)
  1. BARACLUDE [Suspect]
     Indication: CHRONIC HEPATITIS B
     Route: 048
     Dates: start: 20121106, end: 20121106
  2. LISINOPRIL [Concomitant]
     Indication: HYPERTENSION
  3. OXYCODONE [Concomitant]
     Indication: PAIN
     Dates: start: 20121024

REACTIONS (6)
  - Headache [Unknown]
  - Nausea [Unknown]
  - Fatigue [Unknown]
  - Vomiting [Unknown]
  - Hyperhidrosis [Unknown]
  - Dizziness [Unknown]
